FAERS Safety Report 16043562 (Version 3)
Quarter: 2019Q2

REPORT INFORMATION
  Report Type: Spontaneous
  Country: US (occurrence: US)
  Receive Date: 20190306
  Receipt Date: 20190416
  Transmission Date: 20190711
  Serious: Yes (Other)
  Sender: FDA-Public Use
  Company Number: US-ASTRAZENECA-2018SF33487

PATIENT
  Age: 19255 Day
  Sex: Female

DRUGS (50)
  1. VICODIN [Concomitant]
     Active Substance: ACETAMINOPHEN\HYDROCODONE BITARTRATE
  2. ALDACTONE [Concomitant]
     Active Substance: SPIRONOLACTONE
  3. MIRALAX [Concomitant]
     Active Substance: POLYETHYLENE GLYCOL 3350
  4. LOVAZA [Concomitant]
     Active Substance: OMEGA-3-ACID ETHYL ESTERS
  5. BREO ELLIPTA [Concomitant]
     Active Substance: FLUTICASONE FUROATE\VILANTEROL TRIFENATATE
  6. SAXENDA [Concomitant]
     Active Substance: LIRAGLUTIDE
  7. NEXIUM [Suspect]
     Active Substance: ESOMEPRAZOLE MAGNESIUM
     Indication: GASTROOESOPHAGEAL REFLUX DISEASE
     Route: 048
     Dates: start: 200704, end: 201510
  8. PROTONIX [Suspect]
     Active Substance: PANTOPRAZOLE SODIUM
     Indication: GASTROOESOPHAGEAL REFLUX DISEASE
     Route: 048
     Dates: start: 20160126
  9. EFFEXOR XR [Concomitant]
     Active Substance: VENLAFAXINE HYDROCHLORIDE
  10. VENTOLIN HFA [Concomitant]
     Active Substance: ALBUTEROL SULFATE
  11. ASMANEX HFA [Concomitant]
     Active Substance: MOMETASONE FUROATE
  12. PRIMIDONE. [Concomitant]
     Active Substance: PRIMIDONE
  13. PULMICORT TURBUHALER [Concomitant]
     Active Substance: BUDESONIDE
  14. SYNTHROID [Concomitant]
     Active Substance: LEVOTHYROXINE SODIUM
  15. VALTREX [Concomitant]
     Active Substance: VALACYCLOVIR HYDROCHLORIDE
  16. DILTIAZEM. [Concomitant]
     Active Substance: DILTIAZEM
  17. CARTIA XT [Concomitant]
     Active Substance: DILTIAZEM HYDROCHLORIDE
  18. PREZISTA [Concomitant]
     Active Substance: DARUNAVIR ETHANOLATE
  19. FERROUS SULFATE. [Concomitant]
     Active Substance: FERROUS SULFATE
  20. THEOPHYLLINE [Concomitant]
     Active Substance: THEOPHYLLINE ANHYDROUS
  21. NEXIUM [Suspect]
     Active Substance: ESOMEPRAZOLE MAGNESIUM
     Indication: GASTROOESOPHAGEAL REFLUX DISEASE
     Route: 048
     Dates: start: 20070412, end: 20151020
  22. NEXIUM [Suspect]
     Active Substance: ESOMEPRAZOLE MAGNESIUM
     Indication: GASTROOESOPHAGEAL REFLUX DISEASE
     Route: 048
     Dates: start: 20070412
  23. NEXIUM [Suspect]
     Active Substance: ESOMEPRAZOLE MAGNESIUM
     Indication: GASTROOESOPHAGEAL REFLUX DISEASE
     Dosage: ESOMEPRAZOLE MAGNESIUM
     Route: 048
     Dates: start: 20150316
  24. NEXIUM [Suspect]
     Active Substance: ESOMEPRAZOLE MAGNESIUM
     Indication: GASTROOESOPHAGEAL REFLUX DISEASE
     Dosage: GENERIC
     Route: 065
     Dates: start: 20150316, end: 20151109
  25. PREVACID [Suspect]
     Active Substance: LANSOPRAZOLE
     Route: 065
     Dates: start: 200704, end: 201510
  26. PROTONIX [Suspect]
     Active Substance: PANTOPRAZOLE SODIUM
     Indication: GASTROOESOPHAGEAL REFLUX DISEASE
     Route: 065
     Dates: start: 200704, end: 201510
  27. SINGULAIR [Concomitant]
     Active Substance: MONTELUKAST SODIUM
  28. AMLODIPINE BESYLATE. [Concomitant]
     Active Substance: AMLODIPINE BESYLATE
  29. NITROSTAT [Concomitant]
     Active Substance: NITROGLYCERIN
  30. METOPROLOL TARTRATE. [Concomitant]
     Active Substance: METOPROLOL TARTRATE
  31. STARLIX [Concomitant]
     Active Substance: NATEGLINIDE
  32. VALACICLOVIR [Concomitant]
     Active Substance: VALACYCLOVIR HYDROCHLORIDE
  33. TRETINOIN. [Concomitant]
     Active Substance: TRETINOIN
  34. PROVENTIL HFA [Concomitant]
     Active Substance: ALBUTEROL SULFATE
  35. ZETIA [Concomitant]
     Active Substance: EZETIMIBE
  36. NEXIUM [Suspect]
     Active Substance: ESOMEPRAZOLE MAGNESIUM
     Indication: GASTROOESOPHAGEAL REFLUX DISEASE
     Route: 048
     Dates: start: 20070426, end: 20150316
  37. ADVAIR DISKUS [Concomitant]
     Active Substance: FLUTICASONE PROPIONATE\SALMETEROL XINAFOATE
  38. ACIPHEX [Concomitant]
     Active Substance: RABEPRAZOLE SODIUM
  39. SPIRONOLACTONE. [Concomitant]
     Active Substance: SPIRONOLACTONE
  40. BENICAR [Concomitant]
     Active Substance: OLMESARTAN MEDOXOMIL
  41. GLUMETZA [Concomitant]
     Active Substance: METFORMIN HYDROCHLORIDE
  42. PROTONIX [Suspect]
     Active Substance: PANTOPRAZOLE SODIUM
     Indication: GASTROOESOPHAGEAL REFLUX DISEASE
     Dosage: PANTOPRAZOLE SODIUM
     Route: 065
     Dates: start: 20151109
  43. ZYRTEC [Concomitant]
     Active Substance: CETIRIZINE HYDROCHLORIDE
  44. VICTOZA [Concomitant]
     Active Substance: LIRAGLUTIDE
  45. ACZONE [Concomitant]
     Active Substance: DAPSONE
  46. CONTRAVE [Concomitant]
     Active Substance: BUPROPION HYDROCHLORIDE\NALTREXONE HYDROCHLORIDE
  47. VASCEPA [Concomitant]
     Active Substance: ICOSAPENT ETHYL
  48. LIPITOR [Concomitant]
     Active Substance: ATORVASTATIN CALCIUM
  49. BYETTA [Concomitant]
     Active Substance: EXENATIDE
  50. DIOVAN [Concomitant]
     Active Substance: VALSARTAN

REACTIONS (2)
  - Renal injury [Unknown]
  - Chronic kidney disease [Not Recovered/Not Resolved]

NARRATIVE: CASE EVENT DATE: 20171211
